FAERS Safety Report 6361394-3 (Version None)
Quarter: 2009Q3

REPORT INFORMATION
  Report Type: 
  Country: None (occurrence: None)
  Receive Date: 20090918
  Receipt Date: 20090908
  Transmission Date: 20100115
  Serious: Yes (Other)
  Sender: FDA-Public Use
  Company Number: FR-ELI_LILLY_AND_COMPANY-FR200909002147

PATIENT
  Age: 80 Year
  Sex: Female

DRUGS (2)
  1. ZYPREXA [Suspect]
     Indication: BIPOLAR I DISORDER
     Dosage: 30 MG, DAILY (1/D)
     Route: 048
     Dates: end: 20090601
  2. LEVODOPA [Concomitant]
     Indication: PARKINSON'S DISEASE
     Route: 048

REACTIONS (4)
  - ASTHENIA [None]
  - DYSPNOEA [None]
  - OVERDOSE [None]
  - SINUS BRADYCARDIA [None]
